FAERS Safety Report 9543451 (Version 3)
Quarter: 2014Q1

REPORT INFORMATION
  Report Type: Report from Study
  Country: US (occurrence: US)
  Receive Date: 20130923
  Receipt Date: 20140228
  Transmission Date: 20141002
  Serious: Yes (Hospitalization, Other)
  Sender: FDA-Public Use
  Company Number: US-009507513-1204USA02077

PATIENT
  Age: 51 Year
  Sex: Male
  Weight: 226.76 kg

DRUGS (10)
  1. DEXAMETHASONE [Suspect]
     Indication: PLASMA CELL MYELOMA
     Dosage: 40 MG, QW
     Route: 048
     Dates: start: 20110329, end: 20111213
  2. DEXAMETHASONE [Suspect]
     Dosage: 40 MG, QW
     Route: 048
     Dates: start: 20120904, end: 20120904
  3. DEXAMETHASONE [Suspect]
     Dosage: 40 MG, QW
     Route: 048
     Dates: start: 20120828, end: 20120828
  4. DEXAMETHASONE [Suspect]
     Dosage: 40 MG, QW
     Route: 048
     Dates: start: 20120103, end: 20120103
  5. VELCADE [Suspect]
     Indication: PLASMA CELL MYELOMA
     Dosage: 3.5 MG, QW
     Route: 042
     Dates: start: 20110329, end: 20111213
  6. VELCADE [Suspect]
     Dosage: 3.5 MG, QW
     Route: 058
     Dates: start: 20120904, end: 20120904
  7. VELCADE [Suspect]
     Dosage: 3.5 MG, QW
     Route: 058
     Dates: start: 20120828, end: 20120828
  8. VELCADE [Suspect]
     Dosage: 3.5 MG, QW
     Route: 058
     Dates: start: 20120103, end: 20120103
  9. CYTOXAN [Suspect]
     Indication: PLASMA CELL MYELOMA
     Dosage: 900 MG, QW
     Route: 042
     Dates: start: 20110329, end: 20111213
  10. CYTOXAN [Suspect]
     Dosage: 900 MG, QW
     Route: 042
     Dates: start: 20120103, end: 20120103

REACTIONS (7)
  - Cellulitis [Unknown]
  - Fall [Recovered/Resolved]
  - Cellulitis [Unknown]
  - Pneumonia [Unknown]
  - Sepsis [Unknown]
  - Sepsis [Unknown]
  - Angina pectoris [Unknown]
